FAERS Safety Report 6627655-5 (Version None)
Quarter: 2010Q1

REPORT INFORMATION
  Report Type: 
  Country: None (occurrence: None)
  Receive Date: 20100308
  Receipt Date: 20100219
  Transmission Date: 20100710
  Serious: Yes (Other)
  Sender: FDA-Public Use
  Company Number: AUR-APL-2010-00547

PATIENT
  Age: 48 Year
  Sex: Female
  Weight: 97.5234 kg

DRUGS (4)
  1. METOPROLOL [Suspect]
     Indication: HYPERTENSION
     Dates: start: 20080101, end: 20080101
  2. LYRICA [Suspect]
     Indication: NEURALGIA
     Dosage: 75-150 MG, BID, ORAL
     Route: 048
     Dates: start: 20080101
  3. OXYCODONE [Concomitant]
  4. XANAX [Concomitant]

REACTIONS (2)
  - PAIN IN EXTREMITY [None]
  - WEIGHT INCREASED [None]
